FAERS Safety Report 23357532 (Version 1)
Quarter: 2024Q1

REPORT INFORMATION
  Report Type: Spontaneous
  Country: FR (occurrence: FR)
  Receive Date: 20240102
  Receipt Date: 20240102
  Transmission Date: 20240410
  Serious: Yes (Life-Threatening)
  Sender: FDA-Public Use
  Company Number: None

PATIENT
  Age: 57 Year
  Sex: Male

DRUGS (7)
  1. RAMIPRIL [Suspect]
     Active Substance: RAMIPRIL
     Indication: Hypertension
     Dosage: UNK
     Route: 048
     Dates: start: 20231111, end: 20231111
  2. ARIPIPRAZOLE [Suspect]
     Active Substance: ARIPIPRAZOLE
     Indication: Bipolar disorder
     Dosage: UNK
     Route: 048
     Dates: start: 20231111, end: 20231111
  3. ZOPICLONE [Suspect]
     Active Substance: ZOPICLONE
     Indication: Bipolar disorder
     Dosage: UNK
     Route: 048
     Dates: start: 20231111, end: 20231111
  4. PRAVASTATIN [Suspect]
     Active Substance: PRAVASTATIN
     Indication: Dyslipidaemia
     Dosage: UNK
     Route: 048
     Dates: start: 20231111, end: 20231111
  5. PRAZEPAM [Suspect]
     Active Substance: PRAZEPAM
     Indication: Bipolar disorder
     Dosage: UNK
     Route: 048
     Dates: start: 20231111, end: 20231111
  6. ALCOHOL [Suspect]
     Active Substance: ALCOHOL
     Indication: Product used for unknown indication
     Dosage: UNK
     Route: 048
     Dates: start: 20231111, end: 20231111
  7. TRIMEPRAZINE [Suspect]
     Active Substance: TRIMEPRAZINE
     Indication: Bipolar disorder
     Dosage: UNK
     Route: 048
     Dates: start: 20231111, end: 20231111

REACTIONS (1)
  - Nephrogenic diabetes insipidus [Recovered/Resolved]

NARRATIVE: CASE EVENT DATE: 20231111
